FAERS Safety Report 25733422 (Version 2)
Quarter: 2025Q4

REPORT INFORMATION
  Report Type: Spontaneous
  Country: US (occurrence: US)
  Receive Date: 20250828
  Receipt Date: 20251023
  Transmission Date: 20260118
  Serious: No
  Sender: CIPLA
  Company Number: US-CIPLA LTD.-2025US10426

PATIENT

DRUGS (5)
  1. ALBUTEROL [Suspect]
     Active Substance: ALBUTEROL
     Indication: Product used for unknown indication
     Dosage: 180 MICROGRAM, PRN (2 PUFFS BY MOUTH EVERY 4 HOURS AS NEED (90MCG))
  2. ALBUTEROL [Suspect]
     Active Substance: ALBUTEROL
     Dosage: 180 MICROGRAM, PRN (2 PUFFS BY MOUTH EVERY 4 HOURS AS NEED (90MCG)) (LAST 4 TO 6 INHALERS)
  3. ALBUTEROL [Suspect]
     Active Substance: ALBUTEROL
     Dosage: 180 MICROGRAM, PRN (2 PUFFS BY MOUTH EVERY 4 HOURS AS NEED (90MCG)) (LAST 4 TO 6 INHALERS)
  4. ALBUTEROL [Suspect]
     Active Substance: ALBUTEROL
     Dosage: 180 MICROGRAM, PRN (2 PUFFS BY MOUTH EVERY 4 HOURS AS NEED (90MCG)) (LAST 4 TO 6 INHALERS)
  5. ALBUTEROL [Suspect]
     Active Substance: ALBUTEROL
     Dosage: 180 MICROGRAM, PRN (2 PUFFS BY MOUTH EVERY 4 HOURS AS NEED (90MCG))
     Dates: start: 20250812

REACTIONS (3)
  - Drug dose omission by device [Unknown]
  - Device delivery system issue [Unknown]
  - Device issue [Unknown]
